FAERS Safety Report 5748067-2 (Version None)
Quarter: 2008Q2

REPORT INFORMATION
  Report Type: 
  Country: None (occurrence: None)
  Receive Date: 20080523
  Receipt Date: 20080515
  Transmission Date: 20081010
  Serious: Yes (Hospitalization, Other)
  Sender: FDA-Public Use
  Company Number: US-AMGEN-STX280060

PATIENT
  Sex: Female

DRUGS (2)
  1. ENBREL [Suspect]
     Indication: RHEUMATOID ARTHRITIS
     Route: 058
     Dates: start: 20040905
  2. ENBREL [Suspect]
     Indication: PSORIASIS

REACTIONS (5)
  - FALL [None]
  - FOOT DEFORMITY [None]
  - IMPAIRED HEALING [None]
  - INJECTION SITE BRUISING [None]
  - TENDON RUPTURE [None]
